FAERS Safety Report 7297712-1 (Version None)
Quarter: 2011Q1

REPORT INFORMATION
  Report Type: 
  Country: None (occurrence: None)
  Receive Date: 20110217
  Receipt Date: 20110203
  Transmission Date: 20110831
  Serious: Yes (Other)
  Sender: FDA-Public Use
  Company Number: DE-AMGEN-DEUCT2011006681

PATIENT
  Age: 33 Year
  Sex: Female
  Weight: 85 kg

DRUGS (3)
  1. NOVAMINSULFON [Concomitant]
     Indication: ANKYLOSING SPONDYLITIS
     Dosage: 500 MG, ^IF REQUIRED^
     Dates: start: 20090401
  2. THYROXIN [Concomitant]
     Indication: HYPOTHYROIDISM
     Dosage: 100 A?G, UNK
  3. ETANERCEPT [Suspect]
     Indication: ANKYLOSING SPONDYLITIS
     Dosage: 50 MG, QWK
     Route: 058
     Dates: start: 20101104, end: 20101220

REACTIONS (1)
  - LIVER DISORDER [None]
